FAERS Safety Report 4689171-X (Version None)
Quarter: 2005Q2

REPORT INFORMATION
  Report Type: 
  Country: None (occurrence: None)
  Receive Date: 20050613
  Receipt Date: 20050601
  Transmission Date: 20051028
  Serious: Yes (Hospitalization)
  Sender: FDA-Public Use
  Company Number: 2005UW08493

PATIENT
  Age: 58 Year
  Sex: Male
  Weight: 95.3 kg

DRUGS (3)
  1. CRESTOR [Suspect]
     Indication: BLOOD CHOLESTEROL INCREASED
     Route: 048
     Dates: start: 20050301
  2. NIASPAN [Concomitant]
     Dates: start: 20040101
  3. ECOTRIN [Concomitant]

REACTIONS (1)
  - MUSCLE HAEMORRHAGE [None]
